FAERS Safety Report 5797747-1 (Version None)
Quarter: 2008Q3

REPORT INFORMATION
  Report Type: 
  Country: None (occurrence: None)
  Receive Date: 20080702
  Receipt Date: 20080623
  Transmission Date: 20090109
  Serious: Yes (Hospitalization)
  Sender: FDA-Public Use
  Company Number: US-BAXTER-2008BH003997

PATIENT
  Age: 55 Year
  Sex: Male
  Weight: 88 kg

DRUGS (8)
  1. GAMMAGARD LIQUID [Suspect]
     Indication: MYASTHENIA GRAVIS
     Route: 042
     Dates: start: 20080405, end: 20080409
  2. GAMMAGARD LIQUID [Suspect]
     Route: 042
     Dates: start: 20080405, end: 20080409
  3. GAMMAGARD LIQUID [Suspect]
     Route: 042
     Dates: start: 20080405, end: 20080409
  4. CELLCEPT [Concomitant]
     Indication: DRUG USE FOR UNKNOWN INDICATION
     Route: 065
  5. DIGOXIN [Concomitant]
     Indication: DRUG USE FOR UNKNOWN INDICATION
     Route: 065
  6. ASPIRIN [Concomitant]
     Indication: DRUG USE FOR UNKNOWN INDICATION
     Route: 065
  7. MESTINON [Concomitant]
     Indication: DRUG USE FOR UNKNOWN INDICATION
     Route: 065
  8. PREDNISONE [Concomitant]
     Indication: DRUG USE FOR UNKNOWN INDICATION
     Route: 065

REACTIONS (1)
  - DRUG INEFFECTIVE [None]
